FAERS Safety Report 11311454 (Version 2)
Quarter: 2015Q3

REPORT INFORMATION
  Report Type: Spontaneous
  Country: US (occurrence: US)
  Receive Date: 20150727
  Receipt Date: 20150924
  Transmission Date: 20151125
  Serious: Yes (Death)
  Sender: FDA-Public Use
  Company Number: US-BEH-2015052707

PATIENT
  Age: 42 Year
  Sex: Male

DRUGS (4)
  1. INTRAVENOUS IMMUNOGLOBULIN [Suspect]
     Active Substance: HUMAN IMMUNOGLOBULIN G
     Indication: VIRAL INFECTION
     Route: 042
  2. ANTIBIOTICS [Concomitant]
     Active Substance: UNSPECIFIED INGREDIENT
  3. GLUCOCORTICOIDS [Concomitant]
     Active Substance: UNSPECIFIED INGREDIENT
     Dosage: HIGH DOSE
  4. ANTIVIRALS NOS [Concomitant]
     Active Substance: UNSPECIFIED INGREDIENT
     Dosage: HIGH DOSE

REACTIONS (2)
  - Viral infection [Fatal]
  - Drug ineffective [Fatal]

NARRATIVE: CASE EVENT DATE: 201403
